FAERS Safety Report 19395006 (Version 2)
Quarter: 2022Q2

REPORT INFORMATION
  Report Type: Spontaneous
  Country: US (occurrence: US)
  Receive Date: 20210609
  Receipt Date: 20220404
  Transmission Date: 20220720
  Serious: No
  Sender: FDA-Public Use
  Company Number: US-PFIZER INC-2021405875

PATIENT
  Age: 75 Year
  Sex: Female
  Weight: 73.94 kg

DRUGS (5)
  1. IBRANCE [Suspect]
     Active Substance: PALBOCICLIB
     Indication: Breast cancer stage IV
     Dosage: 125 MG, CYCLIC (21 DAY TREATMENT AND SHE IS OFF FOR 7 DAYS   )
     Dates: start: 2020
  2. IBRANCE [Suspect]
     Active Substance: PALBOCICLIB
     Indication: Breast cancer metastatic
  3. MYRBETRIQ [Concomitant]
     Active Substance: MIRABEGRON
     Dosage: UNK
  4. TROSPIUM [Concomitant]
     Active Substance: TROSPIUM
     Dosage: UNK
  5. ZOLEDRONIC [Concomitant]
     Active Substance: ZOLEDRONIC ACID
     Dosage: UNK

REACTIONS (3)
  - Neoplasm progression [Unknown]
  - Somnolence [Recovering/Resolving]
  - Micturition urgency [Not Recovered/Not Resolved]
